FAERS Safety Report 5834870-7 (Version None)
Quarter: 2008Q3

REPORT INFORMATION
  Report Type: 
  Country: None (occurrence: None)
  Receive Date: 20080805
  Receipt Date: 20080805
  Transmission Date: 20090109
  Serious: Yes (Other)
  Sender: FDA-Public Use
  Company Number: None

PATIENT
  Sex: Male

DRUGS (7)
  1. REVLIMID [Suspect]
     Indication: MULTIPLE MYELOMA
     Dosage: 25MG QD X21D/28D PO
     Route: 048
     Dates: start: 20070723, end: 20080804
  2. DEXAMETHASONE [Concomitant]
  3. WARFARIN SODIUM [Concomitant]
  4. HYDROCHLOROTHIAZIDE [Concomitant]
  5. METOPROLOL TARTRATE [Concomitant]
  6. ASPIRIN [Concomitant]
  7. PAMIDRONATE DISODIUM [Concomitant]

REACTIONS (3)
  - ATRIAL FIBRILLATION [None]
  - BRONCHITIS [None]
  - PULMONARY EMBOLISM [None]
